FAERS Safety Report 25866228 (Version 1)
Quarter: 2025Q3

REPORT INFORMATION
  Report Type: Spontaneous
  Country: EU (occurrence: EU)
  Receive Date: 20250930
  Receipt Date: 20250930
  Transmission Date: 20251020
  Serious: Yes (Hospitalization, Other)
  Sender: MYLAN
  Company Number: None

PATIENT
  Age: 52 Year
  Sex: Female

DRUGS (80)
  1. ARIPIPRAZOLE [Suspect]
     Active Substance: ARIPIPRAZOLE
     Indication: Product used for unknown indication
  2. ARIPIPRAZOLE [Suspect]
     Active Substance: ARIPIPRAZOLE
     Route: 048
  3. ARIPIPRAZOLE [Suspect]
     Active Substance: ARIPIPRAZOLE
     Route: 048
  4. ARIPIPRAZOLE [Suspect]
     Active Substance: ARIPIPRAZOLE
  5. KETAMINE [Concomitant]
     Active Substance: KETAMINE
     Indication: Pain
  6. KETAMINE [Concomitant]
     Active Substance: KETAMINE
     Route: 042
  7. KETAMINE [Concomitant]
     Active Substance: KETAMINE
     Route: 042
  8. KETAMINE [Concomitant]
     Active Substance: KETAMINE
  9. LIDOCAINE HYDROCHLORIDE [Concomitant]
     Active Substance: LIDOCAINE HYDROCHLORIDE
     Indication: Pain
  10. LIDOCAINE HYDROCHLORIDE [Concomitant]
     Active Substance: LIDOCAINE HYDROCHLORIDE
     Route: 042
  11. LIDOCAINE HYDROCHLORIDE [Concomitant]
     Active Substance: LIDOCAINE HYDROCHLORIDE
     Route: 042
  12. LIDOCAINE HYDROCHLORIDE [Concomitant]
     Active Substance: LIDOCAINE HYDROCHLORIDE
  13. CALCIUM\CHOLECALCIFEROL [Concomitant]
     Active Substance: CALCIUM\CHOLECALCIFEROL
     Dosage: 500 MILLIGRAM, QD
  14. CALCIUM\CHOLECALCIFEROL [Concomitant]
     Active Substance: CALCIUM\CHOLECALCIFEROL
     Dosage: 500 MILLIGRAM, QD
     Route: 065
  15. CALCIUM\CHOLECALCIFEROL [Concomitant]
     Active Substance: CALCIUM\CHOLECALCIFEROL
     Dosage: 500 MILLIGRAM, QD
     Route: 065
  16. CALCIUM\CHOLECALCIFEROL [Concomitant]
     Active Substance: CALCIUM\CHOLECALCIFEROL
     Dosage: 500 MILLIGRAM, QD
  17. CYMBALTA [Concomitant]
     Active Substance: DULOXETINE HYDROCHLORIDE
     Indication: Anxiety
     Dosage: 120 MILLIGRAM, BID
  18. CYMBALTA [Concomitant]
     Active Substance: DULOXETINE HYDROCHLORIDE
     Dosage: 120 MILLIGRAM, BID
     Route: 065
  19. CYMBALTA [Concomitant]
     Active Substance: DULOXETINE HYDROCHLORIDE
     Dosage: 120 MILLIGRAM, BID
     Route: 065
  20. CYMBALTA [Concomitant]
     Active Substance: DULOXETINE HYDROCHLORIDE
     Dosage: 120 MILLIGRAM, BID
  21. VALTREX [Concomitant]
     Active Substance: VALACYCLOVIR HYDROCHLORIDE
     Indication: Coxsackie viral infection
     Dosage: 500 MILLIGRAM, Q8H
  22. VALTREX [Concomitant]
     Active Substance: VALACYCLOVIR HYDROCHLORIDE
     Dosage: 500 MILLIGRAM, Q8H
     Route: 048
  23. VALTREX [Concomitant]
     Active Substance: VALACYCLOVIR HYDROCHLORIDE
     Dosage: 500 MILLIGRAM, Q8H
     Route: 048
  24. VALTREX [Concomitant]
     Active Substance: VALACYCLOVIR HYDROCHLORIDE
     Dosage: 500 MILLIGRAM, Q8H
  25. ZOLPIDEM TARTRATE [Concomitant]
     Active Substance: ZOLPIDEM TARTRATE
     Indication: Sleep disorder
  26. ZOLPIDEM TARTRATE [Concomitant]
     Active Substance: ZOLPIDEM TARTRATE
     Route: 048
  27. ZOLPIDEM TARTRATE [Concomitant]
     Active Substance: ZOLPIDEM TARTRATE
     Route: 048
  28. ZOLPIDEM TARTRATE [Concomitant]
     Active Substance: ZOLPIDEM TARTRATE
  29. LANSOPRAZOLE [Concomitant]
     Active Substance: LANSOPRAZOLE
     Indication: Gastrointestinal disorder
  30. LANSOPRAZOLE [Concomitant]
     Active Substance: LANSOPRAZOLE
     Route: 065
  31. LANSOPRAZOLE [Concomitant]
     Active Substance: LANSOPRAZOLE
     Route: 065
  32. LANSOPRAZOLE [Concomitant]
     Active Substance: LANSOPRAZOLE
  33. PENTASA [Concomitant]
     Active Substance: MESALAMINE
  34. PENTASA [Concomitant]
     Active Substance: MESALAMINE
     Route: 065
  35. PENTASA [Concomitant]
     Active Substance: MESALAMINE
     Route: 065
  36. PENTASA [Concomitant]
     Active Substance: MESALAMINE
  37. ATORVASTATIN [Concomitant]
     Active Substance: ATORVASTATIN
     Indication: Hypercholesterolaemia
     Dosage: 10 MILLIGRAM, QD (AT NIGHT)
  38. ATORVASTATIN [Concomitant]
     Active Substance: ATORVASTATIN
     Dosage: 10 MILLIGRAM, QD (AT NIGHT)
     Route: 065
  39. ATORVASTATIN [Concomitant]
     Active Substance: ATORVASTATIN
     Dosage: 10 MILLIGRAM, QD (AT NIGHT)
     Route: 065
  40. ATORVASTATIN [Concomitant]
     Active Substance: ATORVASTATIN
     Dosage: 10 MILLIGRAM, QD (AT NIGHT)
  41. VENTOLIN [Concomitant]
     Active Substance: ALBUTEROL SULFATE
     Indication: Asthma
  42. VENTOLIN [Concomitant]
     Active Substance: ALBUTEROL SULFATE
     Route: 065
  43. VENTOLIN [Concomitant]
     Active Substance: ALBUTEROL SULFATE
     Route: 065
  44. VENTOLIN [Concomitant]
     Active Substance: ALBUTEROL SULFATE
  45. FLUTICASONE FUROATE\VILANTEROL TRIFENATATE [Concomitant]
     Active Substance: FLUTICASONE FUROATE\VILANTEROL TRIFENATATE
     Dosage: UNK UNK, QD
  46. FLUTICASONE FUROATE\VILANTEROL TRIFENATATE [Concomitant]
     Active Substance: FLUTICASONE FUROATE\VILANTEROL TRIFENATATE
     Dosage: UNK UNK, QD
     Route: 055
  47. FLUTICASONE FUROATE\VILANTEROL TRIFENATATE [Concomitant]
     Active Substance: FLUTICASONE FUROATE\VILANTEROL TRIFENATATE
     Dosage: UNK UNK, QD
     Route: 055
  48. FLUTICASONE FUROATE\VILANTEROL TRIFENATATE [Concomitant]
     Active Substance: FLUTICASONE FUROATE\VILANTEROL TRIFENATATE
     Dosage: UNK UNK, QD
  49. VENLAFAXINE [Concomitant]
     Active Substance: VENLAFAXINE HYDROCHLORIDE
     Indication: Anxiety
  50. VENLAFAXINE [Concomitant]
     Active Substance: VENLAFAXINE HYDROCHLORIDE
     Route: 065
  51. VENLAFAXINE [Concomitant]
     Active Substance: VENLAFAXINE HYDROCHLORIDE
     Route: 065
  52. VENLAFAXINE [Concomitant]
     Active Substance: VENLAFAXINE HYDROCHLORIDE
  53. XANAX [Concomitant]
     Active Substance: ALPRAZOLAM
  54. XANAX [Concomitant]
     Active Substance: ALPRAZOLAM
     Route: 048
  55. XANAX [Concomitant]
     Active Substance: ALPRAZOLAM
     Route: 048
  56. XANAX [Concomitant]
     Active Substance: ALPRAZOLAM
  57. KEMADRIN [Concomitant]
     Active Substance: PROCYCLIDINE HYDROCHLORIDE
  58. KEMADRIN [Concomitant]
     Active Substance: PROCYCLIDINE HYDROCHLORIDE
     Route: 048
  59. KEMADRIN [Concomitant]
     Active Substance: PROCYCLIDINE HYDROCHLORIDE
     Route: 048
  60. KEMADRIN [Concomitant]
     Active Substance: PROCYCLIDINE HYDROCHLORIDE
  61. SCOPOLAMINE [Concomitant]
     Active Substance: SCOPOLAMINE
     Indication: Salivary hypersecretion
  62. SCOPOLAMINE [Concomitant]
     Active Substance: SCOPOLAMINE
     Route: 062
  63. SCOPOLAMINE [Concomitant]
     Active Substance: SCOPOLAMINE
     Route: 062
  64. SCOPOLAMINE [Concomitant]
     Active Substance: SCOPOLAMINE
  65. DIAZEPAM [Concomitant]
     Active Substance: DIAZEPAM
     Indication: Tongue movement disturbance
     Dosage: UNK, TID, ~4MG IN THE MORNING, 2MG AT LUNCH, 4MG AT NIGHT FOR TONGUE
  66. DIAZEPAM [Concomitant]
     Active Substance: DIAZEPAM
     Dosage: UNK, TID, ~4MG IN THE MORNING, 2MG AT LUNCH, 4MG AT NIGHT FOR TONGUE
     Route: 048
  67. DIAZEPAM [Concomitant]
     Active Substance: DIAZEPAM
     Dosage: UNK, TID, ~4MG IN THE MORNING, 2MG AT LUNCH, 4MG AT NIGHT FOR TONGUE
     Route: 048
  68. DIAZEPAM [Concomitant]
     Active Substance: DIAZEPAM
     Dosage: UNK, TID, ~4MG IN THE MORNING, 2MG AT LUNCH, 4MG AT NIGHT FOR TONGUE
  69. ATROPINE [Concomitant]
     Active Substance: ATROPINE
  70. ATROPINE [Concomitant]
     Active Substance: ATROPINE
     Route: 065
  71. ATROPINE [Concomitant]
     Active Substance: ATROPINE
     Route: 065
  72. ATROPINE [Concomitant]
     Active Substance: ATROPINE
  73. Serc [Concomitant]
     Indication: Tinnitus
     Dosage: 8 MILLIGRAM, Q8H
  74. Serc [Concomitant]
     Dosage: 8 MILLIGRAM, Q8H
     Route: 048
  75. Serc [Concomitant]
     Dosage: 8 MILLIGRAM, Q8H
     Route: 048
  76. Serc [Concomitant]
     Dosage: 8 MILLIGRAM, Q8H
  77. MOVICOL [Concomitant]
     Active Substance: POLYETHYLENE GLYCOL 3350\POTASSIUM CHLORIDE\SODIUM BICARBONATE\SODIUM CHLORIDE
     Indication: Constipation
     Dosage: UNK, QD, 3 TO 8 TIMES
  78. MOVICOL [Concomitant]
     Active Substance: POLYETHYLENE GLYCOL 3350\POTASSIUM CHLORIDE\SODIUM BICARBONATE\SODIUM CHLORIDE
     Dosage: UNK, QD, 3 TO 8 TIMES
     Route: 065
  79. MOVICOL [Concomitant]
     Active Substance: POLYETHYLENE GLYCOL 3350\POTASSIUM CHLORIDE\SODIUM BICARBONATE\SODIUM CHLORIDE
     Dosage: UNK, QD, 3 TO 8 TIMES
     Route: 065
  80. MOVICOL [Concomitant]
     Active Substance: POLYETHYLENE GLYCOL 3350\POTASSIUM CHLORIDE\SODIUM BICARBONATE\SODIUM CHLORIDE
     Dosage: UNK, QD, 3 TO 8 TIMES

REACTIONS (8)
  - Retinal detachment [Unknown]
  - Condition aggravated [Unknown]
  - Visual impairment [Unknown]
  - Macular hole [Unknown]
  - Blepharospasm [Unknown]
  - Eyelid ptosis [Unknown]
  - Rash [Unknown]
  - Diplopia [Unknown]

NARRATIVE: CASE EVENT DATE: 20220101
